FAERS Safety Report 24001620 (Version 2)
Quarter: 2024Q3

REPORT INFORMATION
  Report Type: Spontaneous
  Country: CL (occurrence: CL)
  Receive Date: 20240621
  Receipt Date: 20240711
  Transmission Date: 20241017
  Serious: Yes (Hospitalization, Other)
  Sender: BOEHRINGER INGELHEIM
  Company Number: CL-BoehringerIngelheim-2024-BI-022320

PATIENT
  Age: 45 Year
  Sex: Female

DRUGS (5)
  1. JARDIANCE [Suspect]
     Active Substance: EMPAGLIFLOZIN
     Indication: Type 2 diabetes mellitus
     Dates: end: 20240331
  2. SITAGLIPTIN [Concomitant]
     Active Substance: SITAGLIPTIN
     Indication: Product used for unknown indication
  3. METFORMIN [Concomitant]
     Active Substance: METFORMIN HYDROCHLORIDE
     Indication: Product used for unknown indication
  4. ENALAPRIL [Concomitant]
     Active Substance: ENALAPRIL
     Indication: Product used for unknown indication
  5. CARVEDILOL [Concomitant]
     Active Substance: CARVEDILOL
     Indication: Product used for unknown indication

REACTIONS (15)
  - Aortic valve incompetence [Recovering/Resolving]
  - Left ventricular dilatation [Recovering/Resolving]
  - Acidosis [Recovering/Resolving]
  - Metabolic acidosis [Recovering/Resolving]
  - Hypoperfusion [Recovering/Resolving]
  - Liver function test increased [Recovering/Resolving]
  - Acetonaemia [Recovering/Resolving]
  - Ketoacidosis [Recovering/Resolving]
  - Vasoplegia syndrome [Unknown]
  - Acute hepatic failure [Unknown]
  - Cardiogenic shock [Unknown]
  - Acute kidney injury [Unknown]
  - Hypotension [Recovering/Resolving]
  - Vomiting [Unknown]
  - Loss of consciousness [Unknown]
